FAERS Safety Report 23712869 (Version 1)
Quarter: 2024Q2

REPORT INFORMATION
  Report Type: Spontaneous
  Country: GB (occurrence: GB)
  Receive Date: 20240405
  Receipt Date: 20240405
  Transmission Date: 20240716
  Serious: Yes (Hospitalization, Other)
  Sender: FDA-Public Use
  Company Number: None

PATIENT

DRUGS (1)
  1. VORICONAZOLE [Suspect]
     Active Substance: VORICONAZOLE
     Dosage: UNK

REACTIONS (7)
  - Sinus tachycardia [Recovering/Resolving]
  - Photopsia [Recovered/Resolved]
  - Hallucination, visual [Recovered/Resolved]
  - Visual impairment [Recovering/Resolving]
  - Gait disturbance [Recovered/Resolved]
  - Disorganised speech [Recovered/Resolved]
  - Photophobia [Recovering/Resolving]
